FAERS Safety Report 18343943 (Version 1)
Quarter: 2020Q4

REPORT INFORMATION
  Report Type: Spontaneous
  Country: AU (occurrence: AU)
  Receive Date: 20201001
  Receipt Date: 20201001
  Transmission Date: 20210114
  Serious: Yes (Hospitalization)
  Sender: FDA-Public Use
  Company Number: None

PATIENT
  Age: 61 Year
  Sex: Female

DRUGS (38)
  1. ALLOPURINOL. [Concomitant]
     Active Substance: ALLOPURINOL
  2. CELECOXIB. [Concomitant]
     Active Substance: CELECOXIB
  3. DOK [Concomitant]
     Active Substance: DOCUSATE SODIUM
  4. FOLIC ACID. [Concomitant]
     Active Substance: FOLIC ACID
  5. HYDROCO/APAP [Concomitant]
     Active Substance: ACETAMINOPHEN\HYDROCODONE
  6. METHOCARBAM [Concomitant]
     Active Substance: METHOCARBAMOL
  7. PROAIR HFA [Concomitant]
     Active Substance: ALBUTEROL SULFATE
  8. ULORIC [Concomitant]
     Active Substance: FEBUXOSTAT
  9. CALCITRIOL. [Concomitant]
     Active Substance: CALCITRIOL
  10. METOLAZONE. [Concomitant]
     Active Substance: METOLAZONE
  11. METOPROL TAR [Concomitant]
  12. TORSEMIDE. [Concomitant]
     Active Substance: TORSEMIDE
  13. SILDENAFIL 20MG TAB [Suspect]
     Active Substance: SILDENAFIL
     Indication: PULMONARY ARTERIAL HYPERTENSION
     Route: 048
     Dates: start: 20190724
  14. AZITHROMYCIN ANHYDROUS. [Concomitant]
     Active Substance: AZITHROMYCIN ANHYDROUS
  15. FEBUXOSTAT. [Concomitant]
     Active Substance: FEBUXOSTAT
  16. NIFEDIPINE. [Concomitant]
     Active Substance: NIFEDIPINE
  17. ROSUVASTATIN. [Concomitant]
     Active Substance: ROSUVASTATIN
  18. SMZ/TMP DS [Concomitant]
     Active Substance: SULFAMETHOXAZOLE\TRIMETHOPRIM
  19. INDOMETHACIN. [Concomitant]
     Active Substance: INDOMETHACIN
  20. METHYLPRED [Concomitant]
     Active Substance: METHYLPREDNISOLONE
  21. GABAPENTIN. [Concomitant]
     Active Substance: GABAPENTIN
  22. LEVALBUTEROL AER [Concomitant]
  23. METHOTREXATE. [Concomitant]
     Active Substance: METHOTREXATE
  24. MONTELUKAST [Concomitant]
     Active Substance: MONTELUKAST SODIUM
  25. NITROFUR MAC [Concomitant]
     Active Substance: NITROFURANTOIN
  26. PANTOPRAZOLE [Concomitant]
     Active Substance: PANTOPRAZOLE
  27. POT CHLORIDE [Concomitant]
     Active Substance: POTASSIUM CHLORIDE
  28. PREDNISONE. [Concomitant]
     Active Substance: PREDNISONE
  29. SULFASALAZINE DELAYED-RELEASE [Concomitant]
     Active Substance: SULFASALAZINE
  30. ASMANEX 120 AER [Concomitant]
  31. ASMANEX 60 AER [Concomitant]
  32. CYCLOBENZAPR [Concomitant]
     Active Substance: CYCLOBENZAPRINE
  33. ADVAIR DISKU [Concomitant]
  34. DICLOFENAC [Concomitant]
     Active Substance: DICLOFENAC
  35. ORENCIA [Concomitant]
     Active Substance: ABATACEPT
  36. OSELTAMVIR [Concomitant]
     Active Substance: OSELTAMIVIR
  37. SPIRIVA [Concomitant]
     Active Substance: TIOTROPIUM BROMIDE MONOHYDRATE
  38. SEREVENT DIS AER [Concomitant]

REACTIONS (1)
  - Spinal fusion surgery [None]

NARRATIVE: CASE EVENT DATE: 20200922
